FAERS Safety Report 13073377 (Version 1)
Quarter: 2016Q4

REPORT INFORMATION
  Report Type: Report from Study
  Country: MX (occurrence: MX)
  Receive Date: 20161229
  Receipt Date: 20161229
  Transmission Date: 20170207
  Serious: Yes (Death, Other)
  Sender: FDA-Public Use
  Company Number: MX-BAYER-2016-243458

PATIENT
  Age: 60 Year
  Sex: Male

DRUGS (1)
  1. BETAFERON [Suspect]
     Active Substance: INTERFERON BETA-1B
     Indication: MULTIPLE SCLEROSIS
     Dosage: UNK
     Dates: start: 2007

REACTIONS (6)
  - Constipation [Fatal]
  - Abdominal distension [Fatal]
  - Haematemesis [Unknown]
  - Abdominal pain [Fatal]
  - Gait disturbance [Not Recovered/Not Resolved]
  - Enterocolitis infectious [Fatal]
